FAERS Safety Report 11197479 (Version 1)
Quarter: 2015Q2

REPORT INFORMATION
  Report Type: Spontaneous
  Country: US (occurrence: US)
  Receive Date: 20150617
  Receipt Date: 20150617
  Transmission Date: 20150821
  Serious: Yes (Other)
  Sender: FDA-Public Use
  Company Number: US-PFIZER INC-2015200676

PATIENT
  Age: 54 Year
  Sex: Male
  Weight: 73 kg

DRUGS (1)
  1. LYRICA [Suspect]
     Active Substance: PREGABALIN
     Indication: NEUROPATHY PERIPHERAL
     Dosage: THINKS 300, 3X/DAY
     Dates: start: 201410, end: 20150608

REACTIONS (7)
  - Loss of consciousness [Unknown]
  - Abasia [Unknown]
  - Decreased appetite [Unknown]
  - Condition aggravated [Unknown]
  - Weight decreased [Unknown]
  - Pain in extremity [Unknown]
  - Decreased activity [Unknown]

NARRATIVE: CASE EVENT DATE: 20150611
